FAERS Safety Report 11977544 (Version 1)
Quarter: 2016Q1

REPORT INFORMATION
  Report Type: Spontaneous
  Country: JP (occurrence: JP)
  Receive Date: 20160129
  Receipt Date: 20160129
  Transmission Date: 20160526
  Serious: Yes (Death)
  Sender: FDA-Public Use
  Company Number: JP-EISAI MEDICAL RESEARCH-EC-2015-012666

PATIENT
  Age: 86 Year
  Sex: Female

DRUGS (2)
  1. LENVIMA [Suspect]
     Active Substance: LENVATINIB
     Route: 048
     Dates: start: 20151222, end: 20160105
  2. LENVIMA [Suspect]
     Active Substance: LENVATINIB
     Indication: THYROID CANCER
     Route: 048
     Dates: start: 2015, end: 20151208

REACTIONS (3)
  - Malignant neoplasm progression [Fatal]
  - Thrombocytopenia [Recovering/Resolving]
  - Proteinuria [Recovering/Resolving]

NARRATIVE: CASE EVENT DATE: 20151124
